FAERS Safety Report 14931738 (Version 4)
Quarter: 2021Q1

REPORT INFORMATION
  Report Type: Report from Study
  Country: US (occurrence: US)
  Receive Date: 20180524
  Receipt Date: 20210304
  Transmission Date: 20210419
  Serious: Yes (Death, Hospitalization, Other)
  Sender: FDA-Public Use
  Company Number: US-ACADIA PHARMACEUTICALS INC.-ACA-2018-007817

PATIENT
  Age: 72 Year
  Sex: Male

DRUGS (2)
  1. NUPLAZID [Suspect]
     Active Substance: PIMAVANSERIN TARTRATE
     Indication: PARKINSON^S DISEASE
     Dosage: 34 MG, QD
     Route: 048
     Dates: start: 2017
  2. NUPLAZID [Suspect]
     Active Substance: PIMAVANSERIN TARTRATE
     Indication: PARKINSON^S DISEASE
     Dosage: 34 MILLIGRAM, QD, AT 8 A.M (EARLIER USE TO HAVE AT BEDTIME)
     Route: 048

REACTIONS (6)
  - Sepsis [Unknown]
  - Death [Fatal]
  - Delusion [Unknown]
  - Ill-defined disorder [Unknown]
  - Toe operation [Unknown]
  - Nightmare [Unknown]

NARRATIVE: CASE EVENT DATE: 201802
